FAERS Safety Report 15243071 (Version 2)
Quarter: 2018Q3

REPORT INFORMATION
  Report Type: Spontaneous
  Country: DE (occurrence: DE)
  Receive Date: 20180806
  Receipt Date: 20180812
  Transmission Date: 20181010
  Serious: Yes (Other)
  Sender: FDA-Public Use
  Company Number: DE-TEVA-2018-DE-935822

PATIENT
  Age: 36 Year
  Sex: Female
  Weight: 84 kg

DRUGS (3)
  1. ENBREL [Suspect]
     Active Substance: ETANERCEPT
     Indication: PRODUCT USED FOR UNKNOWN INDICATION
     Route: 065
     Dates: start: 20160913, end: 20170304
  2. AMOXICILLIN W/CLAVULANIC ACID [Suspect]
     Active Substance: AMOXICILLIN\CLAVULANIC ACID
     Indication: BRONCHITIS
     Dosage: 2 GRAM DAILY; 1 G, BID
     Route: 048
     Dates: start: 20170113, end: 20170115
  3. BETAMETHASONE. [Concomitant]
     Active Substance: BETAMETHASONE
     Indication: PSORIASIS
     Dosage: 1 %, UNK
     Route: 065
     Dates: start: 20161122

REACTIONS (4)
  - Rash maculo-papular [Recovered/Resolved]
  - Drug hypersensitivity [Recovered/Resolved]
  - Rash generalised [Recovered/Resolved]
  - Bronchitis [Recovered/Resolved]

NARRATIVE: CASE EVENT DATE: 2017
